FAERS Safety Report 20152614 (Version 1)
Quarter: 2021Q4

REPORT INFORMATION
  Report Type: Spontaneous
  Country: US (occurrence: None)
  Receive Date: 20211206
  Receipt Date: 20211206
  Transmission Date: 20220303
  Serious: No
  Sender: FDA-Public Use
  Company Number: None

PATIENT
  Age: 85 Year
  Sex: Male

DRUGS (1)
  1. CHLORTHALIDONE [Suspect]
     Active Substance: CHLORTHALIDONE
     Indication: Hypertension
     Dosage: FREQUENCY : DAILY;?
     Route: 048
     Dates: start: 20211026, end: 20211115

REACTIONS (8)
  - Asthenia [None]
  - Rash [None]
  - Pruritus [None]
  - Chest pain [None]
  - Burning sensation [None]
  - Abdominal discomfort [None]
  - Hypokalaemia [None]
  - Hypertension [None]

NARRATIVE: CASE EVENT DATE: 20211114
